FAERS Safety Report 11314129 (Version 3)
Quarter: 2015Q4

REPORT INFORMATION
  Report Type: Spontaneous
  Country: JP (occurrence: JP)
  Receive Date: 20150727
  Receipt Date: 20151012
  Transmission Date: 20160304
  Serious: Yes (Other)
  Sender: FDA-Public Use
  Company Number: JP-JNJFOC-20150718781

PATIENT
  Age: 84 Year
  Sex: Female
  Weight: 50 kg

DRUGS (10)
  1. XARELTO [Suspect]
     Active Substance: RIVAROXABAN
     Indication: CEREBROVASCULAR ACCIDENT PROPHYLAXIS
     Route: 048
     Dates: start: 20140825, end: 20150720
  2. DIART [Concomitant]
     Active Substance: AZOSEMIDE
     Indication: PALPITATIONS
     Route: 048
     Dates: start: 20150721
  3. BLOPRESS [Concomitant]
     Active Substance: CANDESARTAN CILEXETIL
     Indication: PRODUCT USED FOR UNKNOWN INDICATION
     Route: 048
     Dates: start: 20121130
  4. DIART [Concomitant]
     Active Substance: AZOSEMIDE
     Indication: DYSPNOEA
     Route: 048
     Dates: start: 20150721
  5. DIART [Concomitant]
     Active Substance: AZOSEMIDE
     Indication: DYSPNOEA
     Route: 048
     Dates: start: 20140617, end: 20150720
  6. DIART [Concomitant]
     Active Substance: AZOSEMIDE
     Indication: PALPITATIONS
     Route: 048
     Dates: start: 20140617, end: 20150720
  7. XARELTO [Suspect]
     Active Substance: RIVAROXABAN
     Indication: ATRIAL FIBRILLATION
     Route: 048
     Dates: start: 20140825, end: 20150720
  8. MEVALOTIN [Concomitant]
     Active Substance: PRAVASTATIN SODIUM
     Indication: PRODUCT USED FOR UNKNOWN INDICATION
     Route: 048
     Dates: start: 20110727
  9. VASOLAN [Concomitant]
     Active Substance: VERAPAMIL HYDROCHLORIDE
     Route: 048
     Dates: start: 20110727
  10. LOPRESSOR [Concomitant]
     Active Substance: METOPROLOL TARTRATE
     Route: 048
     Dates: start: 20110727

REACTIONS (3)
  - Renal disorder [Recovering/Resolving]
  - Cerebral infarction [Recovering/Resolving]
  - Skin haemorrhage [Recovering/Resolving]

NARRATIVE: CASE EVENT DATE: 20150312
